FAERS Safety Report 15248923 (Version 3)
Quarter: 2018Q4

REPORT INFORMATION
  Report Type: Spontaneous
  Country: US (occurrence: US)
  Receive Date: 20180807
  Receipt Date: 20181008
  Transmission Date: 20190204
  Serious: No
  Sender: FDA-Public Use
  Company Number: US-PFIZER INC-2018311318

PATIENT
  Age: 43 Year
  Sex: Female

DRUGS (2)
  1. XYLOCAINE [Suspect]
     Active Substance: LIDOCAINE HYDROCHLORIDE
     Dosage: 500 MG 150 ML (2CC INJECTION TO THE FACE)
     Dates: start: 20180719
  2. WATER BACTERIOSTATIC [Suspect]
     Active Substance: WATER
     Dosage: UNK
     Dates: start: 20080719

REACTIONS (9)
  - Swelling [Recovered/Resolved]
  - Injection site pain [Unknown]
  - Injection site warmth [Recovered/Resolved]
  - Poor quality product administered [Unknown]
  - Erythema [Recovered/Resolved]
  - Product contamination [Unknown]
  - Injection site erythema [Recovered/Resolved]
  - Pyrexia [Recovered/Resolved]
  - Chills [Recovered/Resolved]

NARRATIVE: CASE EVENT DATE: 20180719
